FAERS Safety Report 23027689 (Version 1)
Quarter: 2023Q4

REPORT INFORMATION
  Report Type: Spontaneous
  Country: FR (occurrence: FR)
  Receive Date: 20231004
  Receipt Date: 20231004
  Transmission Date: 20240110
  Serious: Yes (Hospitalization)
  Sender: FDA-Public Use
  Company Number: FR-ROCHE-3417060

PATIENT
  Age: 72 Year
  Sex: Female

DRUGS (3)
  1. BEVACIZUMAB [Suspect]
     Active Substance: BEVACIZUMAB
     Indication: Pancreatic neuroendocrine tumour
     Dosage: 260 MG
     Route: 042
     Dates: start: 20230807, end: 20230807
  2. CAPECITABINE [Suspect]
     Active Substance: CAPECITABINE
     Indication: Pancreatic neuroendocrine tumour
     Dosage: UNK
     Route: 048
     Dates: start: 20230807
  3. TEMODAL [Suspect]
     Active Substance: TEMOZOLOMIDE
     Indication: Pancreatic neuroendocrine tumour
     Dosage: UNK
     Route: 048
     Dates: start: 20230807

REACTIONS (3)
  - Sepsis [Not Recovered/Not Resolved]
  - Psychomotor retardation [Unknown]
  - Constipation [Unknown]

NARRATIVE: CASE EVENT DATE: 20230812
